FAERS Safety Report 9283835 (Version 2)
Quarter: 2013Q3

REPORT INFORMATION
  Report Type: Report from Study
  Country: GB (occurrence: GB)
  Receive Date: 20130510
  Receipt Date: 20130717
  Transmission Date: 20140515
  Serious: Yes (Other)
  Sender: FDA-Public Use
  Company Number: GB-VERTEX PHARMACEUTICALS INC-2013-005466

PATIENT
  Age: 54 Year
  Sex: Male

DRUGS (3)
  1. VX-950 (TELAPREVIR) [Suspect]
     Indication: HEPATITIS C
     Dosage: 750 MG, TID, TABLET
     Route: 048
     Dates: start: 20130417, end: 201306
  2. PEGINTERFERON ALFA [Suspect]
     Indication: HEPATITIS C
     Dosage: INJECTION, QW
     Route: 058
     Dates: start: 20130417, end: 201306
  3. RIBAVIRIN [Suspect]
     Indication: HEPATITIS C
     Dosage: TABLET, BID
     Route: 048
     Dates: start: 20130417, end: 201306

REACTIONS (3)
  - Rash [Not Recovered/Not Resolved]
  - Platelet count decreased [Unknown]
  - Proctalgia [Not Recovered/Not Resolved]
